FAERS Safety Report 16710916 (Version 3)
Quarter: 2019Q3

REPORT INFORMATION
  Report Type: Spontaneous
  Country: JP (occurrence: JP)
  Receive Date: 20190816
  Receipt Date: 20190916
  Transmission Date: 20191004
  Serious: Yes (Other)
  Sender: FDA-Public Use
  Company Number: JP-PFIZER INC-2019348431

PATIENT
  Age: 40 Year
  Sex: Female

DRUGS (5)
  1. LYRICA [Suspect]
     Active Substance: PREGABALIN
     Dosage: 75 MG, 2X/DAY (TWICE DAILY AFTER BREAKFAST AND BEFORE BEDTIME)
     Dates: start: 20190701, end: 2019
  2. LYRICA [Suspect]
     Active Substance: PREGABALIN
     Dosage: 25 MG, 2X/DAY (TWICE DAILY AFTER BREAKFAST AND DINNER FOR 10 DAYS )
     Dates: start: 2019, end: 20190804
  3. LYRICA [Suspect]
     Active Substance: PREGABALIN
     Dosage: 25 MG, 2X/DAY (FOR 10 DAYS)
     Route: 048
     Dates: start: 20190710, end: 2019
  4. LYRICA [Suspect]
     Active Substance: PREGABALIN
     Indication: NEURALGIA
     Dosage: 75 MG, 2X/DAY (FOR 18 DAYS)
     Route: 048
     Dates: start: 20190613, end: 2019
  5. LYRICA [Suspect]
     Active Substance: PREGABALIN
     Dosage: 25 MG, AS NEEDED (TWICE DAILY)
     Route: 048
     Dates: start: 2019, end: 2019

REACTIONS (3)
  - Somnolence [Unknown]
  - Oculomucocutaneous syndrome [Unknown]
  - Skin exfoliation [Recovering/Resolving]

NARRATIVE: CASE EVENT DATE: 2019
